FAERS Safety Report 16078899 (Version 1)
Quarter: 2019Q1

REPORT INFORMATION
  Report Type: Report from Study
  Country: CA (occurrence: CA)
  Receive Date: 20190315
  Receipt Date: 20190315
  Transmission Date: 20190418
  Serious: Yes (Death, Other)
  Sender: FDA-Public Use
  Company Number: CA-BRISTOL-MYERS SQUIBB COMPANY-BMS-2018-103083

PATIENT
  Age: 27 Year
  Sex: Male

DRUGS (2)
  1. NIVOLUMAB [Suspect]
     Active Substance: NIVOLUMAB
     Indication: MALIGNANT MELANOMA
     Dosage: 1 MG/KG, Q3WK
     Route: 042
     Dates: start: 20181019
  2. YERVOY [Suspect]
     Active Substance: IPILIMUMAB
     Indication: MALIGNANT MELANOMA
     Dosage: 3 MICROGRAM/KILOGRAM, Q3WK
     Route: 042
     Dates: start: 20181019

REACTIONS (5)
  - Headache [Unknown]
  - Increased appetite [Unknown]
  - Death [Fatal]
  - Fatigue [Unknown]
  - Eye pain [Unknown]

NARRATIVE: CASE EVENT DATE: 20181019
